FAERS Safety Report 7240682-2 (Version None)
Quarter: 2011Q1

REPORT INFORMATION
  Report Type: 
  Country: None (occurrence: None)
  Receive Date: 20110124
  Receipt Date: 20100708
  Transmission Date: 20110831
  Serious: No
  Sender: FDA-Public Use
  Company Number: US-KINGPHARMUSA00001-K201000865

PATIENT
  Age: 30 Year
  Sex: Female

DRUGS (1)
  1. EPIPEN [Suspect]
     Indication: ANAPHYLACTIC REACTION
     Dosage: 0.3 MG, TWICE IN ONE DAY
     Route: 030
     Dates: start: 20100707, end: 20100707

REACTIONS (1)
  - DRUG INEFFECTIVE [None]
